FAERS Safety Report 16262089 (Version 1)
Quarter: 2019Q2

REPORT INFORMATION
  Report Type: Spontaneous
  Country: US (occurrence: US)
  Receive Date: 20190501
  Receipt Date: 20190501
  Transmission Date: 20190711
  Serious: Yes (Other)
  Sender: FDA-Public Use
  Company Number: US-PFIZER INC-2019179259

PATIENT
  Age: 41 Year
  Sex: Female

DRUGS (1)
  1. LYRICA [Suspect]
     Active Substance: PREGABALIN
     Indication: FIBROMYALGIA
     Dosage: 150 MG, 2X/DAY

REACTIONS (11)
  - Choking [Unknown]
  - Feeling abnormal [Unknown]
  - Peripheral swelling [Unknown]
  - Irritable bowel syndrome [Not Recovered/Not Resolved]
  - Sleep apnoea syndrome [Unknown]
  - Nausea [Unknown]
  - Vomiting [Unknown]
  - Dizziness [Unknown]
  - Erythema [Unknown]
  - Pain in extremity [Unknown]
  - Abdominal pain [Unknown]
